FAERS Safety Report 7272907-1 (Version None)
Quarter: 2011Q1

REPORT INFORMATION
  Report Type: 
  Country: None (occurrence: None)
  Receive Date: 20110203
  Receipt Date: 20110127
  Transmission Date: 20110831
  Serious: Yes (Hospitalization, Other)
  Sender: FDA-Public Use
  Company Number: US-ELI_LILLY_AND_COMPANY-US201005000729

PATIENT
  Sex: Male
  Weight: 142.86 kg

DRUGS (42)
  1. HUMALOG [Concomitant]
     Dates: start: 20070901, end: 20071005
  2. GLIMEPIRIDE [Concomitant]
     Indication: DIABETES MELLITUS
     Dates: start: 20070606, end: 20070707
  3. NORVASC [Concomitant]
     Dosage: 10 MG, DAILY (1/D)
     Route: 048
     Dates: start: 20080304
  4. BYETTA [Suspect]
     Dosage: 10 UG, 2/D
     Dates: start: 20041217
  5. GLIMEPIRIDE [Concomitant]
     Dates: start: 20071005, end: 20071120
  6. VYTORIN [Concomitant]
     Dates: start: 20071005, end: 20071110
  7. PROPOXYPHENE HYDROCHLORIDE [Concomitant]
     Dosage: 100 MG, EVERY 4 HRS AS NEEDED
     Route: 048
     Dates: start: 20090426
  8. ASPIRIN [Concomitant]
     Dosage: 81 MEQ, UNK
     Dates: start: 20041217, end: 20090630
  9. HUMALOG [Concomitant]
     Dosage: 50 U, EACH EVENING
     Dates: start: 20090620
  10. LISINOPRIL /USA/ [Concomitant]
     Indication: BLOOD PRESSURE
     Dates: start: 20060205, end: 20060306
  11. VYTORIN [Concomitant]
     Dates: start: 20070413, end: 20070502
  12. VYTORIN [Concomitant]
     Dates: start: 20070606, end: 20070712
  13. VYTORIN [Concomitant]
     Dates: start: 20070811, end: 20070909
  14. RENAGEL [Concomitant]
     Dosage: 800 MG WITH MEALS
     Dates: start: 20090630
  15. HUMALOG [Concomitant]
     Indication: DIABETES MELLITUS
     Dates: start: 20060316, end: 20070413
  16. CAPTOPRIL [Concomitant]
     Dates: start: 20050904, end: 20051104
  17. LISINOPRIL /USA/ [Concomitant]
     Dates: start: 20070811, end: 20070909
  18. FLOMAX [Concomitant]
     Dosage: 0.4 MG, DAILY (1/D)
     Route: 048
     Dates: start: 20091110
  19. BYSTOLIC [Concomitant]
     Dosage: 5 MG, DAILY (1/D)
     Route: 048
     Dates: start: 20090426
  20. FUROSEMIDE [Concomitant]
     Dosage: 40 MG, DAILY (1/D)
     Route: 048
     Dates: start: 20090426
  21. HUMALOG [Concomitant]
     Dosage: 25 U, EACH EVENING
     Route: 058
     Dates: start: 20041217
  22. VERAPAMIL [Concomitant]
     Dates: start: 20070901, end: 20071005
  23. PRILOSEC [Concomitant]
     Dosage: 20 MG, DAILY (1/D)
     Route: 048
     Dates: start: 20080304
  24. BYETTA [Suspect]
     Indication: WEIGHT DECREASED
     Dosage: UNK, UNKNOWN
     Route: 058
     Dates: start: 20040401
  25. HUMALOG [Concomitant]
     Dates: start: 20071120
  26. HUMALOG [Concomitant]
     Dosage: 50 U, EACH MORNING
     Route: 058
     Dates: start: 20041217
  27. GLIMEPIRIDE [Concomitant]
     Dates: start: 20070811, end: 20070909
  28. VYTORIN [Concomitant]
     Indication: BLOOD CHOLESTEROL
     Dates: start: 20060330, end: 20060502
  29. ACTOS [Concomitant]
     Dosage: 45 MG, DAILY (1/D)
     Route: 048
     Dates: start: 20090426
  30. MVI /USA/ [Concomitant]
     Dates: start: 20041217, end: 20090630
  31. HUMALOG [Concomitant]
     Dosage: 75 U, EACH MORNING
     Dates: start: 20090620
  32. CAPTOPRIL [Concomitant]
     Indication: BLOOD PRESSURE
     Dates: start: 20050628, end: 20050801
  33. LISINOPRIL /USA/ [Concomitant]
     Dates: start: 20060330, end: 20070502
  34. LISINOPRIL /USA/ [Concomitant]
     Dates: start: 20070616, end: 20070712
  35. LISINOPRIL /USA/ [Concomitant]
     Dates: start: 20071005, end: 20071112
  36. VERAPAMIL [Concomitant]
     Indication: BLOOD PRESSURE
     Dates: start: 20070502, end: 20070521
  37. VERAPAMIL [Concomitant]
     Dates: start: 20070616, end: 20070721
  38. LOTREL [Concomitant]
  39. BYETTA [Suspect]
     Dosage: 10 UG, 2/D
     Route: 058
     Dates: start: 20090524
  40. NOVOLOG [Concomitant]
     Indication: DIABETES MELLITUS
     Dates: start: 20060218, end: 20060328
  41. HUMALOG [Concomitant]
     Dates: start: 20070618, end: 20070723
  42. ATROPINE [Concomitant]
     Indication: BLOOD PRESSURE
     Dates: start: 20051013

REACTIONS (4)
  - PANCREATITIS [None]
  - RENAL FAILURE ACUTE [None]
  - RENAL FAILURE CHRONIC [None]
  - OFF LABEL USE [None]
